FAERS Safety Report 22053756 (Version 3)
Quarter: 2023Q1

REPORT INFORMATION
  Report Type: Report from Study
  Country: CA (occurrence: CA)
  Receive Date: 20230302
  Receipt Date: 20230321
  Transmission Date: 20230417
  Serious: Yes (Hospitalization, Disabling, Other)
  Sender: FDA-Public Use
  Company Number: CA-TAKEDA-2023TUS018801

PATIENT
  Age: 56 Year
  Sex: Female

DRUGS (26)
  1. TEDUGLUTIDE [Suspect]
     Active Substance: TEDUGLUTIDE
     Indication: Short-bowel syndrome
     Dosage: 24 MILLIGRAM, QD
     Route: 050
     Dates: start: 20230215
  2. TEDUGLUTIDE [Suspect]
     Active Substance: TEDUGLUTIDE
     Indication: Short-bowel syndrome
     Dosage: 24 MILLIGRAM, QD
     Route: 050
     Dates: start: 20230215
  3. TEDUGLUTIDE [Suspect]
     Active Substance: TEDUGLUTIDE
     Indication: Short-bowel syndrome
     Dosage: 24 MILLIGRAM, QD
     Route: 050
     Dates: start: 20230215
  4. TEDUGLUTIDE [Suspect]
     Active Substance: TEDUGLUTIDE
     Indication: Short-bowel syndrome
     Dosage: 24 MILLIGRAM, QD
     Route: 050
     Dates: start: 20230215
  5. TEDUGLUTIDE [Suspect]
     Active Substance: TEDUGLUTIDE
     Dosage: 24 MILLIGRAM, QD
     Route: 058
     Dates: start: 20230215
  6. TEDUGLUTIDE [Suspect]
     Active Substance: TEDUGLUTIDE
     Dosage: 24 MILLIGRAM, QD
     Route: 058
     Dates: start: 20230215
  7. TEDUGLUTIDE [Suspect]
     Active Substance: TEDUGLUTIDE
     Dosage: 24 MILLIGRAM, QD
     Route: 058
     Dates: start: 20230215
  8. TEDUGLUTIDE [Suspect]
     Active Substance: TEDUGLUTIDE
     Dosage: 24 MILLIGRAM, QD
     Route: 058
     Dates: start: 20230215
  9. TEDUGLUTIDE [Suspect]
     Active Substance: TEDUGLUTIDE
     Dosage: 24 MILLIGRAM, QD
     Route: 050
     Dates: start: 20230215
  10. TEDUGLUTIDE [Suspect]
     Active Substance: TEDUGLUTIDE
     Dosage: 24 MILLIGRAM, QD
     Route: 050
     Dates: start: 20230215
  11. TEDUGLUTIDE [Suspect]
     Active Substance: TEDUGLUTIDE
     Dosage: 24 MILLIGRAM, QD
     Route: 050
     Dates: start: 20230215
  12. TEDUGLUTIDE [Suspect]
     Active Substance: TEDUGLUTIDE
     Dosage: 24 MILLIGRAM, QD
     Route: 050
     Dates: start: 20230215
  13. CLONAZEPAM [Concomitant]
     Active Substance: CLONAZEPAM
     Dosage: 5 MILLIGRAM, BID
     Route: 065
  14. CLONAZEPAM [Concomitant]
     Active Substance: CLONAZEPAM
     Dosage: 0.5 MILLIGRAM, BID
     Route: 065
  15. ZOPICLONE [Concomitant]
     Active Substance: ZOPICLONE
     Dosage: 7.5 MILLIGRAM, BID
     Route: 065
  16. CODEINE [Concomitant]
     Active Substance: CODEINE
     Dosage: 50 MILLIGRAM, TID
     Route: 065
  17. MEDAZEPAM [Concomitant]
     Active Substance: MEDAZEPAM
     Dosage: 30 MILLIGRAM, QD
     Route: 065
  18. RESTORIL [Concomitant]
     Active Substance: TEMAZEPAM
     Dosage: 30 MILLIGRAM, BID
     Route: 065
  19. PANTOPRAZOLE SODIUM [Concomitant]
     Active Substance: PANTOPRAZOLE SODIUM
     Dosage: 40 MILLIGRAM, QD
     Route: 065
  20. FLUOXETINE [Concomitant]
     Active Substance: FLUOXETINE HYDROCHLORIDE
     Dosage: 20 MILLIGRAM, QD
     Route: 065
  21. ATROVENT [Concomitant]
     Active Substance: IPRATROPIUM BROMIDE
     Dosage: 4 DOSAGE FORM, QD
     Route: 065
  22. ALBUTEROL [Concomitant]
     Active Substance: ALBUTEROL
     Dosage: UNK
     Route: 065
  23. SYMBICORT [Concomitant]
     Active Substance: BUDESONIDE\FORMOTEROL FUMARATE DIHYDRATE
     Indication: Coagulopathy
     Dosage: UNK UNK, BID
     Route: 065
  24. TPN [Concomitant]
     Active Substance: AMINO ACIDS\DEXTROSE\ELECTROLYTES NOS\SOYBEAN OIL
     Dosage: 2000 MILLILITER, QD
     Route: 065
     Dates: start: 202007
  25. TPN [Concomitant]
     Active Substance: AMINO ACIDS\DEXTROSE\ELECTROLYTES NOS\SOYBEAN OIL
     Dosage: 2000 MILLILITER, QD
     Route: 065
     Dates: start: 20221007
  26. TPN [Concomitant]
     Active Substance: AMINO ACIDS\DEXTROSE\ELECTROLYTES NOS\SOYBEAN OIL
     Dosage: 500 MILLILITER, QD
     Route: 065
     Dates: start: 20230222

REACTIONS (24)
  - Intracardiac thrombus [Not Recovered/Not Resolved]
  - Periorbital swelling [Not Recovered/Not Resolved]
  - Complication associated with device [Unknown]
  - Obstruction [Not Recovered/Not Resolved]
  - Peripheral swelling [Unknown]
  - Muscle spasms [Unknown]
  - Asthma [Unknown]
  - Tremor [Unknown]
  - Diarrhoea [Unknown]
  - Thirst [Unknown]
  - Swelling [Not Recovered/Not Resolved]
  - Asthenia [Unknown]
  - Poor quality sleep [Unknown]
  - Pharyngeal erythema [Unknown]
  - Pharyngeal swelling [Unknown]
  - Panic attack [Unknown]
  - Swelling face [Unknown]
  - Hypersensitivity [Unknown]
  - Flushing [Not Recovered/Not Resolved]
  - Anxiety [Unknown]
  - Erythema [Unknown]
  - Dyspnoea [Unknown]
  - Cough [Not Recovered/Not Resolved]
  - Decreased appetite [Unknown]

NARRATIVE: CASE EVENT DATE: 20230101
